FAERS Safety Report 23343122 (Version 1)
Quarter: 2023Q4

REPORT INFORMATION
  Report Type: Spontaneous
  Country: JP (occurrence: JP)
  Receive Date: 20231227
  Receipt Date: 20231227
  Transmission Date: 20240110
  Serious: Yes (Other)
  Sender: FDA-Public Use
  Company Number: JP-BAUSCHBL-2023BNL013722

PATIENT
  Age: 70 Year
  Sex: Male

DRUGS (3)
  1. BROMFENAC SODIUM [Suspect]
     Active Substance: BROMFENAC SODIUM
     Indication: Product used for unknown indication
     Route: 047
  2. LEVOFLOXACIN HEMIHYDRATE [Concomitant]
     Active Substance: LEVOFLOXACIN
     Indication: Product used for unknown indication
     Route: 047
  3. BETAMETHASONE\NEOMYCIN [Concomitant]
     Active Substance: BETAMETHASONE\NEOMYCIN
     Indication: Product used for unknown indication
     Dosage: MEDICINE FOR EXTERNAL USE
     Route: 065

REACTIONS (2)
  - Blepharitis [Unknown]
  - Conjunctivitis [Unknown]

NARRATIVE: CASE EVENT DATE: 20211101
